FAERS Safety Report 16364609 (Version 3)
Quarter: 2019Q3

REPORT INFORMATION
  Report Type: Report from Study
  Country: None (occurrence: CA)
  Receive Date: 20190529
  Receipt Date: 20190729
  Transmission Date: 20191004
  Serious: Yes (Hospitalization, Other)
  Sender: FDA-Public Use
  Company Number: CA-ABBVIE-19K-028-2728464-00

PATIENT
  Age: 65 Year
  Sex: Female

DRUGS (2)
  1. HUMIRA [Suspect]
     Active Substance: ADALIMUMAB
     Indication: CROHN^S DISEASE
     Route: 058
     Dates: start: 20170327, end: 201903
  2. HUMIRA [Suspect]
     Active Substance: ADALIMUMAB
     Route: 058
     Dates: start: 20190612

REACTIONS (5)
  - Clostridium difficile infection [Not Recovered/Not Resolved]
  - Anal fistula [Recovered/Resolved]
  - Rectal fistula repair [Unknown]
  - Crohn^s disease [Not Recovered/Not Resolved]
  - Abdominal abscess [Unknown]

NARRATIVE: CASE EVENT DATE: 2019
